FAERS Safety Report 8987070 (Version 1)
Quarter: 2012Q4

REPORT INFORMATION
  Report Type: Spontaneous
  Country: US (occurrence: None)
  Receive Date: 20121217
  Receipt Date: 20121217
  Transmission Date: 20130627
  Serious: Yes (Other)
  Sender: FDA-Public Use
  Company Number: DKLU1087080

PATIENT
  Sex: Male

DRUGS (3)
  1. ONFI (CLOBAZAM) (CLOBAZAM) (5 MG) [Suspect]
  2. LAMOTRIGINE (LAMOTRIGINE) [Concomitant]
  3. VALPROATE (VALPROATE SODIUM) [Concomitant]

REACTIONS (1)
  - Myoclonus [None]
